FAERS Safety Report 4334375-9 (Version None)
Quarter: 2004Q1

REPORT INFORMATION
  Report Type: 
  Country: None (occurrence: None)
  Receive Date: 20040326
  Receipt Date: 20031208
  Transmission Date: 20041129
  Serious: No
  Sender: FDA-Public Use
  Company Number: US-JNJFOC-20031201890

PATIENT
  Age: 80 Year
  Sex: Male

DRUGS (1)
  1. REMINYL [Suspect]
     Indication: DEMENTIA ALZHEIMER'S TYPE
     Dosage: 4 MG, 2 IN 24 HOUR, ORAL
     Route: 048
     Dates: start: 20031207

REACTIONS (2)
  - ASTHENIA [None]
  - DIZZINESS [None]
